FAERS Safety Report 24132139 (Version 2)
Quarter: 2024Q3

REPORT INFORMATION
  Report Type: Spontaneous
  Country: US (occurrence: US)
  Receive Date: 20240724
  Receipt Date: 20240806
  Transmission Date: 20241016
  Serious: No
  Sender: BAYER
  Company Number: US-BAYER-2024A102992

PATIENT
  Age: 39 Year
  Sex: Female
  Weight: 122.45 kg

DRUGS (2)
  1. MIRENA [Suspect]
     Active Substance: LEVONORGESTREL
     Indication: Intrauterine contraception
     Dosage: 20?G/DAY
     Route: 015
     Dates: start: 20240115
  2. MIRENA [Suspect]
     Active Substance: LEVONORGESTREL
     Indication: Heavy menstrual bleeding

REACTIONS (3)
  - Device placement issue [None]
  - Device dislocation [Not Recovered/Not Resolved]
  - Cervical polyp [None]

NARRATIVE: CASE EVENT DATE: 20240101
